FAERS Safety Report 11910630 (Version 2)
Quarter: 2016Q1

REPORT INFORMATION
  Report Type: Spontaneous
  Country: FR (occurrence: FR)
  Receive Date: 20160112
  Receipt Date: 20160118
  Transmission Date: 20160526
  Serious: Yes (Life-Threatening, Hospitalization)
  Sender: FDA-Public Use
  Company Number: FR-ASTRAZENECA-2016SE01934

PATIENT
  Age: 396 Month
  Sex: Male
  Weight: 55 kg

DRUGS (12)
  1. XEROQUEL SR [Suspect]
     Active Substance: QUETIAPINE FUMARATE
     Indication: INSOMNIA
     Route: 048
     Dates: start: 2013
  2. CRESTOR [Suspect]
     Active Substance: ROSUVASTATIN CALCIUM
     Indication: CARDIOVASCULAR EVENT PROPHYLAXIS
     Route: 048
     Dates: start: 201407, end: 201502
  3. MELATONIN [Concomitant]
     Active Substance: MELATONIN
     Route: 048
  4. ATARAX [Concomitant]
     Active Substance: HYDROXYZINE\HYDROXYZINE HYDROCHLORIDE
  5. CRESTOR [Suspect]
     Active Substance: ROSUVASTATIN CALCIUM
     Indication: CARDIOVASCULAR EVENT PROPHYLAXIS
     Route: 048
     Dates: start: 201502
  6. SEROPLEX [Suspect]
     Active Substance: ESCITALOPRAM OXALATE
     Route: 048
  7. BRILIQUE [Concomitant]
     Active Substance: TICAGRELOR
     Indication: ACUTE CORONARY SYNDROME
     Dates: start: 201407
  8. TENORMIN [Concomitant]
     Active Substance: ATENOLOL
     Indication: ACUTE CORONARY SYNDROME
     Dates: start: 201407, end: 201503
  9. XEROQUEL SR [Suspect]
     Active Substance: QUETIAPINE FUMARATE
     Indication: ANXIETY DISORDER
     Route: 048
     Dates: start: 2013
  10. KARDEGIC [Concomitant]
     Active Substance: ASPIRIN LYSINE
     Indication: ACUTE CORONARY SYNDROME
     Dates: start: 201407
  11. THERALENE [Concomitant]
     Active Substance: TRIMEPRAZINE
  12. INEXIUM [Concomitant]
     Active Substance: ESOMEPRAZOLE
     Dates: start: 201407

REACTIONS (9)
  - Hepatocellular injury [Not Recovered/Not Resolved]
  - Angina pectoris [Recovered/Resolved with Sequelae]
  - Cholestasis [Not Recovered/Not Resolved]
  - Hypercholesterolaemia [Recovered/Resolved with Sequelae]
  - Product use issue [Unknown]
  - Myalgia [Unknown]
  - Coronary artery stenosis [Unknown]
  - Acute coronary syndrome [Recovered/Resolved with Sequelae]
  - Aortic valve incompetence [Unknown]

NARRATIVE: CASE EVENT DATE: 201407
